FAERS Safety Report 9009316 (Version 2)
Quarter: 2013Q3

REPORT INFORMATION
  Report Type: Report from Study
  Country: CA (occurrence: CA)
  Receive Date: 20130111
  Receipt Date: 20130717
  Transmission Date: 20140515
  Serious: Yes (Other)
  Sender: FDA-Public Use
  Company Number: CA-UCBSA-069456

PATIENT
  Age: 72 Year
  Sex: Female
  Weight: 57.6 kg

DRUGS (12)
  1. CIMZIA [Suspect]
     Indication: RHEUMATOID ARTHRITIS
     Dosage: 3 TIME, ON HOLD
     Route: 058
     Dates: start: 20121002, end: 20121113
  2. CIMZIA [Suspect]
     Indication: RHEUMATOID ARTHRITIS
     Route: 058
     Dates: start: 20121127, end: 20121226
  3. METHOTREXATE [Concomitant]
     Indication: RHEUMATOID ARTHRITIS
     Route: 048
     Dates: start: 2005
  4. FOLIC ACID [Concomitant]
     Indication: RHEUMATOID ARTHRITIS
     Route: 048
     Dates: start: 2005
  5. PREDNISONE [Concomitant]
     Indication: RHEUMATOID ARTHRITIS
     Route: 048
  6. PAXIL [Concomitant]
     Indication: DEPRESSION
     Route: 048
  7. SYNTHROID [Concomitant]
     Indication: HYPOTHYROIDISM
     Route: 048
  8. CRESTOR [Concomitant]
     Indication: HYPERCHOLESTEROLAEMIA
     Route: 048
  9. ALEVE [Concomitant]
     Indication: PAIN
     Dosage: MG
     Route: 048
  10. ACTONEL [Concomitant]
     Indication: OSTEOPOROSIS
     Route: 048
  11. AZYTHROMYCINE [Concomitant]
     Indication: MALAISE
     Dosage: 250MG ( 2CO) THE FIRST DAY THEN 250MG QD FOR 4 DAYS
     Dates: start: 20121014, end: 20121018
  12. ENSURE [Concomitant]
     Indication: ASTHENIA

REACTIONS (10)
  - Oral candidiasis [Not Recovered/Not Resolved]
  - Clostridium difficile infection [Unknown]
  - Diverticulum [Unknown]
  - Nasal discharge discolouration [Not Recovered/Not Resolved]
  - Malaise [Unknown]
  - Fatigue [Not Recovered/Not Resolved]
  - Decreased appetite [Unknown]
  - Asthenia [Not Recovered/Not Resolved]
  - Weight decreased [Unknown]
  - Anaemia [Unknown]
